FAERS Safety Report 4274696-1 (Version None)
Quarter: 2004Q1

REPORT INFORMATION
  Report Type: 
  Country: None (occurrence: None)
  Receive Date: 20040115
  Receipt Date: 20040107
  Transmission Date: 20041129
  Serious: Yes (Hospitalization)
  Sender: FDA-Public Use
  Company Number: FR-JNJFOC-20040100971

PATIENT
  Age: 79 Year
  Sex: Male

DRUGS (8)
  1. REMINYL [Suspect]
     Indication: DEMENTIA ALZHEIMER'S TYPE
     Dosage: 8 MG, 2 IN 1 DAY, ORAL
     Route: 048
     Dates: start: 20031015, end: 20031217
  2. PROZAC [Concomitant]
  3. NOOTROPYL (PIRACETAM) [Concomitant]
  4. PRAVASTATIN SODIUM [Concomitant]
  5. SERMION (NICERGOLINE) [Concomitant]
  6. AMLODIPINE BESYLATE [Concomitant]
  7. PLAVIX [Concomitant]
  8. NITRIDERM (GLYCERIL TRINITRATE) [Concomitant]

REACTIONS (3)
  - BRONCHOSPASM [None]
  - DYSPNOEA [None]
  - HYPOXIA [None]
